FAERS Safety Report 6043640-9 (Version None)
Quarter: 2009Q1

REPORT INFORMATION
  Report Type: 
  Country: None (occurrence: None)
  Receive Date: 20090115
  Receipt Date: 20090115
  Transmission Date: 20090719
  Serious: No
  Sender: FDA-Public Use
  Company Number: None

PATIENT
  Age: 8 Year
  Sex: Male
  Weight: 35.8342 kg

DRUGS (1)
  1. AMOXICILLIN [Suspect]
     Indication: UPPER RESPIRATORY TRACT INFECTION
     Dosage: 2 TSP BID PO
     Route: 048
     Dates: start: 20081213, end: 20081223

REACTIONS (1)
  - URTICARIA [None]
